FAERS Safety Report 20377731 (Version 1)
Quarter: 2022Q1

REPORT INFORMATION
  Report Type: Spontaneous
  Country: US (occurrence: US)
  Receive Date: 20220126
  Receipt Date: 20220126
  Transmission Date: 20220423
  Serious: No
  Sender: FDA-Public Use
  Company Number: US-BIOGEN-2022BI01088646

PATIENT
  Age: 44 Year
  Sex: Female

DRUGS (1)
  1. SPINRAZA [Suspect]
     Active Substance: NUSINERSEN
     Indication: Product used for unknown indication
     Dosage: THERAPY DATES: 02 SEP 2019, 25 SEP 2019, 11 OCT 2019, 06 NOV 2019, 23 APR 2020, 24 AUG 2020, 22 D...
     Route: 065

REACTIONS (2)
  - Loss of therapeutic response [Unknown]
  - Prescribed underdose [Unknown]

NARRATIVE: CASE EVENT DATE: 20211006
